FAERS Safety Report 23230038 (Version 1)
Quarter: 2023Q4

REPORT INFORMATION
  Report Type: Spontaneous
  Country: DE (occurrence: None)
  Receive Date: 20231127
  Receipt Date: 20231127
  Transmission Date: 20240110
  Serious: Yes (Other)
  Sender: FDA-Public Use
  Company Number: 2023A267050

PATIENT
  Weight: 81 kg

DRUGS (16)
  1. DAPAGLIFLOZIN [Suspect]
     Active Substance: DAPAGLIFLOZIN
     Route: 048
  2. SODIUM ZIRCONIUM CYCLOSILICATE [Suspect]
     Active Substance: SODIUM ZIRCONIUM CYCLOSILICATE
     Route: 048
  3. ABIXAPAN [Concomitant]
  4. ASPIRIN [Concomitant]
     Active Substance: ASPIRIN
     Dosage: 100
  5. VALSARTAN [Concomitant]
     Active Substance: VALSARTAN
  6. VALSARTAN [Concomitant]
     Active Substance: VALSARTAN
  7. TORSEMIDE [Concomitant]
     Active Substance: TORSEMIDE
  8. SPIRONOLACTONE [Concomitant]
     Active Substance: SPIRONOLACTONE
  9. BISOPROLOL [Concomitant]
     Active Substance: BISOPROLOL\BISOPROLOL FUMARATE
  10. DAPAGLIFLOZIN [Concomitant]
     Active Substance: DAPAGLIFLOZIN
  11. ATORVASTATIN [Concomitant]
     Active Substance: ATORVASTATIN
  12. S-CREATININE [Concomitant]
     Dosage: 1,9 MG/DL
  13. ASPIRIN [Concomitant]
     Active Substance: ASPIRIN
  14. ABIXAPAN [Concomitant]
     Dosage: 100 MG
  15. SPIRONOLACTONE [Concomitant]
     Active Substance: SPIRONOLACTONE
  16. IBUPROFEN [Concomitant]
     Active Substance: IBUPROFEN

REACTIONS (7)
  - Chronic kidney disease [Unknown]
  - Coronary artery disease [Unknown]
  - Metabolic syndrome [Unknown]
  - Hyperkalaemia [Unknown]
  - Blood creatinine [Unknown]
  - Type 2 diabetes mellitus [Unknown]
  - Hypertension [Unknown]
